APPROVED DRUG PRODUCT: DESOXYN
Active Ingredient: METHAMPHETAMINE HYDROCHLORIDE
Strength: 5MG
Dosage Form/Route: TABLET;ORAL
Application: N005378 | Product #002 | TE Code: AA
Applicant: AJENAT PHARMACEUTICALS LLC
Approved: Approved Prior to Jan 1, 1982 | RLD: Yes | RS: Yes | Type: RX